FAERS Safety Report 5696503-2 (Version None)
Quarter: 2008Q2

REPORT INFORMATION
  Report Type: 
  Country: None (occurrence: None)
  Receive Date: 20080408
  Receipt Date: 20080403
  Transmission Date: 20081010
  Serious: Yes (Life-Threatening, Hospitalization)
  Sender: FDA-Public Use
  Company Number: FR-BRISTOL-MYERS SQUIBB COMPANY-14137921

PATIENT
  Age: 47 Year
  Sex: Male

DRUGS (9)
  1. ELISOR TABS [Suspect]
     Dates: start: 20030101, end: 20080303
  2. TAVANIC [Suspect]
     Dates: start: 20080301, end: 20080304
  3. GLUCOPHAGE [Concomitant]
  4. AVLOCARDYL [Concomitant]
  5. TRIATEC [Concomitant]
  6. KARDEGIC [Concomitant]
  7. MIRTAZAPINE [Concomitant]
  8. FLUOXETINE [Concomitant]
  9. ZYPREXA [Concomitant]

REACTIONS (4)
  - ALCOHOL PROBLEM [None]
  - GRAND MAL CONVULSION [None]
  - HYPONATRAEMIA [None]
  - RHABDOMYOLYSIS [None]
